FAERS Safety Report 5026615-8 (Version None)
Quarter: 2006Q2

REPORT INFORMATION
  Report Type: 
  Country: None (occurrence: None)
  Receive Date: 20060615
  Receipt Date: 20051229
  Transmission Date: 20061013
  Serious: Yes (Hospitalization)
  Sender: FDA-Public Use
  Company Number: CA-NOVOPROD-249740

PATIENT
  Age: 61 Year
  Sex: Male
  Weight: 163 kg

DRUGS (11)
  1. LEVEMIR [Suspect]
     Indication: INSULIN-REQUIRING TYPE II DIABETES MELLITUS
     Dosage: 70 UNITS
     Route: 058
     Dates: start: 20051219, end: 20051228
  2. LEVEMIR [Suspect]
     Dosage: 70 IU, QD
     Route: 058
     Dates: start: 20060124
  3. ATACAND [Concomitant]
     Dates: start: 20010101
  4. PIOGLITAZONE HYDROCHLORIDE [Concomitant]
     Dates: start: 20010101
  5. ATORVASTATIN CALCIUM [Concomitant]
     Dates: start: 20010101
  6. METFORMIN [Concomitant]
     Dates: start: 20010101
  7. LIPIDIL [Concomitant]
     Dates: start: 20010101
  8. WELLBUTRIN                         /00700501/ [Concomitant]
     Dosage: 150 MG, QD
     Route: 048
     Dates: start: 20011010
  9. WARFARIN SODIUM [Concomitant]
     Dosage: 10 MG, QD
     Route: 048
     Dates: start: 20011009
  10. ACTOS                              /01460201/ [Concomitant]
  11. LIPITOR [Concomitant]

REACTIONS (1)
  - CELLULITIS [None]
